FAERS Safety Report 24007959 (Version 1)
Quarter: 2024Q2

REPORT INFORMATION
  Report Type: Spontaneous
  Country: US (occurrence: US)
  Receive Date: 20240625
  Receipt Date: 20240625
  Transmission Date: 20240716
  Serious: No
  Sender: FDA-Public Use
  Company Number: US-TEVA-2023-US-2944925

PATIENT
  Age: 35 Year
  Sex: Female

DRUGS (3)
  1. UZEDY [Suspect]
     Active Substance: RISPERIDONE
     Indication: Major depression
     Dosage: DOSAGE TEXT: FORM STRENGTH: 50/0.14 MG/ML, 50MG SQ
     Route: 058
     Dates: start: 20231020, end: 20231121
  2. UZEDY [Suspect]
     Active Substance: RISPERIDONE
  3. VIVITROL [Concomitant]
     Active Substance: NALTREXONE
     Indication: Drug use disorder
     Route: 065

REACTIONS (3)
  - Off label use [Unknown]
  - Product use in unapproved indication [Unknown]
  - Drug screen positive [Recovered/Resolved]

NARRATIVE: CASE EVENT DATE: 20231114
